FAERS Safety Report 6734524-9 (Version None)
Quarter: 2010Q2

REPORT INFORMATION
  Report Type: 
  Country: None (occurrence: None)
  Receive Date: 20100520
  Receipt Date: 20100507
  Transmission Date: 20101027
  Serious: Yes (Hospitalization, Other)
  Sender: FDA-Public Use
  Company Number: US-ELI_LILLY_AND_COMPANY-US201005002908

PATIENT
  Age: 66 Year
  Sex: Male

DRUGS (4)
  1. EFFIENT [Suspect]
     Indication: PERCUTANEOUS CORONARY INTERVENTION
     Dosage: 60 MG, DAILY (1/D)
     Dates: start: 20100401, end: 20100401
  2. EFFIENT [Suspect]
     Dosage: 10 MG, DAILY (1/D)
     Dates: start: 20100401, end: 20100101
  3. ASPIRIN [Concomitant]
     Dates: end: 20100101
  4. ASPIRIN [Concomitant]
     Dates: start: 20100101

REACTIONS (5)
  - ARTERIAL THROMBOSIS [None]
  - COAGULATION TIME PROLONGED [None]
  - GROIN PAIN [None]
  - HAEMORRHAGE [None]
  - THROMBOSIS [None]
